FAERS Safety Report 12812354 (Version 1)
Quarter: 2016Q4

REPORT INFORMATION
  Report Type: Report from Study
  Country: BR (occurrence: BR)
  Receive Date: 20161005
  Receipt Date: 20161005
  Transmission Date: 20170207
  Serious: Yes (Disabling, Other)
  Sender: FDA-Public Use
  Company Number: PHHY2015BR161534

PATIENT
  Age: 74 Year
  Sex: Female
  Weight: 80 kg

DRUGS (1)
  1. ACLASTA [Suspect]
     Active Substance: ZOLEDRONIC ACID
     Indication: OSTEOPOROSIS
     Dosage: 5 MG, Q12MO
     Route: 042
     Dates: start: 20151203

REACTIONS (6)
  - Pain in extremity [Recovering/Resolving]
  - Fall [Unknown]
  - Malaise [Unknown]
  - Abasia [Unknown]
  - Pain [Recovered/Resolved]
  - Nipple pain [Unknown]

NARRATIVE: CASE EVENT DATE: 20151204
